FAERS Safety Report 6011369-9 (Version None)
Quarter: 2008Q4

REPORT INFORMATION
  Report Type: 
  Country: None (occurrence: None)
  Receive Date: 20081218
  Receipt Date: 20081203
  Transmission Date: 20090506
  Serious: Yes (Other)
  Sender: FDA-Public Use
  Company Number: CH-GENENTECH-273496

PATIENT
  Age: 65 Year
  Sex: Male

DRUGS (3)
  1. MABTHERA [Suspect]
     Indication: HAIRY CELL LEUKAEMIA
     Dosage: 800 MG, 1/WEEK
     Route: 042
     Dates: start: 20071214, end: 20080208
  2. ACETAMINOPHEN [Concomitant]
     Indication: DRUG USE FOR UNKNOWN INDICATION
     Dosage: UNK
     Dates: start: 20071214, end: 20080208
  3. TAVEGYL [Concomitant]
     Indication: DRUG USE FOR UNKNOWN INDICATION
     Dosage: UNK
     Dates: start: 20071214, end: 20080208

REACTIONS (1)
  - ATRIAL FIBRILLATION [None]
